FAERS Safety Report 9527103 (Version 1)
Quarter: 2013Q3

REPORT INFORMATION
  Report Type: Spontaneous
  Country: US (occurrence: US)
  Receive Date: 20130916
  Receipt Date: 20130916
  Transmission Date: 20140515
  Serious: Yes (Hospitalization)
  Sender: FDA-Public Use
  Company Number: US-B.I. PHARMACEUTICALS,INC./RIDGEFIELD-2013-BI-28420BP

PATIENT
  Age: 74 Year
  Sex: Female
  Weight: 79 kg

DRUGS (6)
  1. PRADAXA [Suspect]
     Indication: ATRIAL FIBRILLATION
     Dosage: 300 MG
     Route: 048
     Dates: start: 2011
  2. CARDIZEM [Concomitant]
     Indication: HEART RATE IRREGULAR
     Dosage: 60 MG
     Route: 048
  3. CARDIZEM [Concomitant]
     Indication: HYPERTENSION
  4. CYMBALTA [Concomitant]
     Indication: ANXIETY
     Dosage: 60 MG
     Route: 048
  5. CYMBALTA [Concomitant]
     Indication: BONE PAIN
  6. VITAMINS [Concomitant]

REACTIONS (1)
  - Arthritis [Recovered/Resolved]
